FAERS Safety Report 7589222-9 (Version None)
Quarter: 2011Q2

REPORT INFORMATION
  Report Type: 
  Country: None (occurrence: None)
  Receive Date: 20110627
  Receipt Date: 20110614
  Transmission Date: 20111010
  Serious: Yes (Hospitalization)
  Sender: FDA-Public Use
  Company Number: UTC-007900

PATIENT
  Age: 81 Year
  Sex: Female
  Weight: 77.3 kg

DRUGS (2)
  1. REMODULIN [Suspect]
     Indication: PULMONARY ARTERIAL HYPERTENSION
     Dosage: 66.24 UG/KG (0.046 UG/KG, 1 IN 1 MIN), SUBCUTANEOUS
     Route: 058
     Dates: start: 20101123
  2. COUMADIN [Concomitant]

REACTIONS (1)
  - WEIGHT DECREASED [None]
